FAERS Safety Report 5345267-0 (Version None)
Quarter: 2007Q2

REPORT INFORMATION
  Report Type: 
  Country: None (occurrence: None)
  Receive Date: 20070601
  Receipt Date: 20070601
  Transmission Date: 20071010
  Serious: Yes (Hospitalization)
  Sender: FDA-Public Use
  Company Number: None

PATIENT
  Sex: Female

DRUGS (2)
  1. XOLAIR [Suspect]
     Indication: ASTHMA
     Dosage: 375 MG Q2WEEKS SQ GIVEN
     Route: 058
     Dates: start: 20070220, end: 20070529
  2. XOLAIR [Suspect]

REACTIONS (3)
  - ERYTHEMA [None]
  - INJECTION SITE URTICARIA [None]
  - PRURITUS GENERALISED [None]
